FAERS Safety Report 10305702 (Version 1)
Quarter: 2014Q3

REPORT INFORMATION
  Report Type: Spontaneous
  Country: US (occurrence: None)
  Receive Date: 20140711
  Receipt Date: 20140711
  Transmission Date: 20150326
  Serious: Yes (Disabling)
  Sender: FDA-Public Use
  Company Number: None

PATIENT
  Age: 49 Year
  Sex: Female
  Weight: 47.63 kg

DRUGS (1)
  1. CIPROFLOXACIN. [Suspect]
     Active Substance: CIPROFLOXACIN
     Indication: CYSTITIS
     Dosage: 1 TAB TWICE DAILY TAKEN BY MOUTH
     Route: 048
     Dates: start: 20140706, end: 20140708

REACTIONS (7)
  - Negative thoughts [None]
  - Speech disorder [None]
  - Dizziness [None]
  - Infection [None]
  - Thinking abnormal [None]
  - Anxiety [None]
  - Balance disorder [None]

NARRATIVE: CASE EVENT DATE: 20140706
